FAERS Safety Report 18893359 (Version 1)
Quarter: 2021Q1

REPORT INFORMATION
  Report Type: Spontaneous
  Country: JP (occurrence: JP)
  Receive Date: 20210215
  Receipt Date: 20210215
  Transmission Date: 20210420
  Serious: Yes (Other)
  Sender: FDA-Public Use
  Company Number: JP-MYLANLABS-2021M1008333

PATIENT
  Age: 9 Year
  Sex: Male

DRUGS (13)
  1. IFOSFAMIDE. [Suspect]
     Active Substance: IFOSFAMIDE
     Indication: PINEAL NEOPLASM
     Route: 065
  2. ETOPOSIDE. [Suspect]
     Active Substance: ETOPOSIDE
     Indication: METASTASES TO SPINAL CORD
  3. MELPHALAN. [Concomitant]
     Active Substance: MELPHALAN
     Indication: METASTASES TO SPINAL CORD
     Route: 065
     Dates: start: 201912
  4. ETOPOSIDE. [Suspect]
     Active Substance: ETOPOSIDE
     Indication: EXTRAGONADAL PRIMARY GERM CELL TUMOUR
  5. IFOSFAMIDE. [Suspect]
     Active Substance: IFOSFAMIDE
     Indication: METASTASES TO SPINAL CORD
  6. FENTANYL. [Concomitant]
     Active Substance: FENTANYL
     Indication: MUCOSAL DISORDER
     Route: 065
  7. ETOPOSIDE. [Suspect]
     Active Substance: ETOPOSIDE
     Indication: PINEAL NEOPLASM
     Route: 065
  8. THIOTEPA. [Concomitant]
     Active Substance: THIOTEPA
     Dosage: CONSOLIDATION THERAPY
     Route: 065
     Dates: start: 202003
  9. CARBOPLATIN. [Suspect]
     Active Substance: CARBOPLATIN
     Indication: METASTASES TO SPINAL CORD
  10. IFOSFAMIDE. [Suspect]
     Active Substance: IFOSFAMIDE
     Indication: EXTRAGONADAL PRIMARY GERM CELL TUMOUR
  11. THIOTEPA. [Concomitant]
     Active Substance: THIOTEPA
     Indication: METASTASES TO SPINAL CORD
     Dosage: UNK
     Route: 065
     Dates: start: 201912
  12. CARBOPLATIN. [Suspect]
     Active Substance: CARBOPLATIN
     Indication: PINEAL NEOPLASM
     Route: 065
  13. CARBOPLATIN. [Suspect]
     Active Substance: CARBOPLATIN
     Indication: EXTRAGONADAL PRIMARY GERM CELL TUMOUR

REACTIONS (1)
  - Drug ineffective [Unknown]
